FAERS Safety Report 12783702 (Version 4)
Quarter: 2017Q1

REPORT INFORMATION
  Report Type: Report from Study
  Country: US (occurrence: US)
  Receive Date: 20160927
  Receipt Date: 20170201
  Transmission Date: 20170428
  Serious: No
  Sender: FDA-Public Use
  Company Number: PHEH2016US024381

PATIENT
  Age: 49 Year
  Sex: Female

DRUGS (1)
  1. COSENTYX [Suspect]
     Active Substance: SECUKINUMAB
     Indication: PSORIATIC ARTHROPATHY
     Dosage: 300 MG, QW
     Route: 058
     Dates: start: 20160915

REACTIONS (4)
  - Bronchitis [Unknown]
  - Pleurisy [Unknown]
  - Incorrect dose administered [Unknown]
  - Infection [Unknown]

NARRATIVE: CASE EVENT DATE: 20161003
